FAERS Safety Report 8609293-8 (Version None)
Quarter: 2012Q3

REPORT INFORMATION
  Report Type: 
  Country: None (occurrence: None)
  Receive Date: 20120821
  Receipt Date: 20120814
  Transmission Date: 20120928
  Serious: Yes (Hospitalization, Other)
  Sender: FDA-Public Use
  Company Number: PHHY2011VE105784

PATIENT
  Sex: Female

DRUGS (12)
  1. ARAVA [Concomitant]
     Indication: ARTHRITIS
     Dosage: ONE TABLET DAILY
     Route: 048
     Dates: start: 20020101
  2. VOLTAREN [Concomitant]
     Indication: ARTHRALGIA
     Route: 048
     Dates: start: 19940101
  3. ZOLEDRONOC ACID [Suspect]
     Dosage: 5 MG, EACH 6 MONTHS
     Route: 042
     Dates: start: 20101001
  4. ZOLEDRONOC ACID [Suspect]
     Indication: OSTEOPOROSIS
     Dosage: 5 MG, EACH 6 MONTHS
     Route: 042
     Dates: start: 20100501
  5. ZOLEDRONOC ACID [Suspect]
     Dosage: 5 MG, EACH 6 MONTHS
     Route: 042
     Dates: start: 20120501
  6. CALCORT [Concomitant]
     Indication: ARTHRITIS
     Dosage: 6 MG, QD
     Dates: start: 19940101
  7. LERCADIP [Concomitant]
     Indication: HYPERTENSION
     Route: 048
     Dates: start: 19990101
  8. ZOLEDRONOC ACID [Suspect]
     Dosage: 5 MG, EACH 6 MONTHS
     Route: 042
     Dates: start: 20110501
  9. FOLIC ACID [Concomitant]
     Indication: ARTHRITIS
     Dosage: DAILY
  10. ESOMEPRAZOLE SODIUM [Concomitant]
     Indication: GASTRIC DISORDER
     Dosage: BID
     Route: 048
  11. TELMISARTAN AND HYDROCHLOROTHIAZIDE [Concomitant]
     Indication: HYPERTENSION
     Route: 048
     Dates: start: 19990101
  12. BISOPROLOL FUMARATE [Concomitant]
     Indication: HYPERTENSION
     Route: 048
     Dates: start: 19990101

REACTIONS (7)
  - OVERDOSE [None]
  - GASTROENTERITIS STAPHYLOCOCCAL [None]
  - POSTOPERATIVE WOUND COMPLICATION [None]
  - INAPPROPRIATE SCHEDULE OF DRUG ADMINISTRATION [None]
  - LIMB DISCOMFORT [None]
  - STAPHYLOCOCCAL INFECTION [None]
  - IMPAIRED HEALING [None]
